FAERS Safety Report 19808569 (Version 2)
Quarter: 2023Q1

REPORT INFORMATION
  Report Type: Spontaneous
  Country: GB (occurrence: GB)
  Receive Date: 20210909
  Receipt Date: 20230209
  Transmission Date: 20230418
  Serious: Yes (Hospitalization, Other)
  Sender: FDA-Public Use
  Company Number: GB-NOVARTISPH-NVSC2021GB198068

PATIENT
  Age: 63 Year
  Sex: Female

DRUGS (4)
  1. EVEROLIMUS [Suspect]
     Active Substance: EVEROLIMUS
     Indication: Chemotherapy
     Dosage: UNK
     Route: 048
  2. LANREOTIDE ACETATE [Suspect]
     Active Substance: LANREOTIDE ACETATE
     Indication: Neuroendocrine tumour
     Dosage: 120 MG, Q4W (120 MG/0.5 ML EVERY 4 WEEKS)
     Route: 058
  3. LANREOTIDE ACETATE [Suspect]
     Active Substance: LANREOTIDE ACETATE
     Dosage: 90 MG, Q4W (90 MG/0.3 ML EVERY 4 WEEKS)
     Route: 058
     Dates: start: 20210212
  4. CREON [Concomitant]
     Active Substance: PANCRELIPASE AMYLASE\PANCRELIPASE LIPASE\PANCRELIPASE PROTEASE
     Indication: Abdominal pain
     Dosage: UNK (WITH THE MAIN MEAL)
     Route: 065

REACTIONS (13)
  - Lower respiratory tract infection [Not Recovered/Not Resolved]
  - Infection [Unknown]
  - Atrial fibrillation [Unknown]
  - Ear infection [Unknown]
  - Urinary tract infection [Unknown]
  - Tachycardia [Recovering/Resolving]
  - Rib fracture [Unknown]
  - Thyroid cancer [Recovering/Resolving]
  - Fall [Unknown]
  - Cardiac disorder [Unknown]
  - Neoplasm progression [Unknown]
  - Constipation [Unknown]
  - Fatigue [Unknown]
